FAERS Safety Report 23847376 (Version 3)
Quarter: 2024Q2

REPORT INFORMATION
  Report Type: Spontaneous
  Country: US (occurrence: US)
  Receive Date: 20240513
  Receipt Date: 20240604
  Transmission Date: 20240716
  Serious: Yes (Other)
  Sender: FDA-Public Use
  Company Number: US-REGENERON PHARMACEUTICALS, INC.-2024-068053

PATIENT
  Sex: Female

DRUGS (3)
  1. EYLEA [Suspect]
     Active Substance: AFLIBERCEPT
     Indication: Diabetic retinopathy
     Dosage: 2 MG, EVERY 5 WEEKS, BOTH EYES, FORMULATION: VIAL
     Dates: start: 2016
  2. EYLEA [Suspect]
     Active Substance: AFLIBERCEPT
     Indication: Diabetic retinal oedema
     Dosage: 2 MG, EVERY 5 WEEKS, BOTH EYES, FORMULATION: VIAL
  3. REFRESH EYE ALLERGY RELIEF [Concomitant]
     Indication: Product used for unknown indication

REACTIONS (5)
  - Blindness transient [Recovered/Resolved]
  - Eye infection [Recovered/Resolved]
  - Eye disorder [Unknown]
  - Adverse event [Unknown]
  - Intraocular pressure increased [Recovering/Resolving]
